FAERS Safety Report 9442430 (Version 2)
Quarter: 2013Q3

REPORT INFORMATION
  Report Type: Report from Study
  Country: CA (occurrence: CA)
  Receive Date: 20130806
  Receipt Date: 20130813
  Transmission Date: 20140515
  Serious: Yes (Other)
  Sender: FDA-Public Use
  Company Number: CA-ROCHE-1257651

PATIENT
  Sex: Female
  Weight: 75 kg

DRUGS (16)
  1. RITUXAN [Suspect]
     Indication: GRANULOMATOSIS WITH POLYANGIITIS
     Route: 042
     Dates: start: 20130724
  2. SOLU-MEDROL [Suspect]
     Indication: PREMEDICATION
     Route: 042
     Dates: start: 20130724
  3. TYLENOL [Concomitant]
     Indication: PREMEDICATION
     Route: 048
     Dates: start: 20130724
  4. BENADRYL (CANADA) [Concomitant]
     Indication: PREMEDICATION
     Route: 048
     Dates: start: 20130724
  5. PREDNISONE [Concomitant]
  6. HYDROCHLOROTHIAZIDE [Concomitant]
  7. METHOTREXATE [Concomitant]
  8. BETAGAN [Concomitant]
  9. XALATAN [Concomitant]
  10. COUMADIN [Concomitant]
  11. PANTOLOC [Concomitant]
     Dosage: AS REQUIRED
     Route: 065
  12. ACETAMINOPHEN [Concomitant]
     Route: 048
     Dates: start: 20130724
  13. DIPHENHYDRAMINE HCL [Concomitant]
     Route: 048
     Dates: start: 20130724
  14. METHYLPREDNISOLONE [Concomitant]
     Route: 042
     Dates: start: 20130724
  15. WARFARIN [Concomitant]
  16. HEPARIN [Concomitant]
     Route: 065

REACTIONS (1)
  - International normalised ratio increased [Unknown]
